FAERS Safety Report 11273473 (Version 1)
Quarter: 2015Q3

REPORT INFORMATION
  Report Type: Spontaneous
  Country: BE (occurrence: BE)
  Receive Date: 20150715
  Receipt Date: 20150715
  Transmission Date: 20151125
  Serious: Yes (Death)
  Sender: FDA-Public Use
  Company Number: BE-ASTRAZENECA-2015SE68144

PATIENT
  Age: 1064 Month
  Sex: Male
  Weight: 100 kg

DRUGS (1)
  1. ONGLYZA [Suspect]
     Active Substance: SAXAGLIPTIN HYDROCHLORIDE
     Indication: DIABETES MELLITUS
     Route: 048
     Dates: start: 2011

REACTIONS (3)
  - Malignant mesenteric neoplasm [Fatal]
  - Gastrointestinal carcinoma [Fatal]
  - Malignant ascites [Fatal]

NARRATIVE: CASE EVENT DATE: 201406
